FAERS Safety Report 16088564 (Version 2)
Quarter: 2019Q3

REPORT INFORMATION
  Report Type: Spontaneous
  Country: US (occurrence: US)
  Receive Date: 20190319
  Receipt Date: 20190918
  Transmission Date: 20191004
  Serious: No
  Sender: FDA-Public Use
  Company Number: US-PFIZER INC-2019112002

PATIENT
  Age: 30 Year
  Sex: Female

DRUGS (4)
  1. NORTRIPTYLINE [Suspect]
     Active Substance: NORTRIPTYLINE
     Dosage: UNK
  2. CYMBALTA [Suspect]
     Active Substance: DULOXETINE HYDROCHLORIDE
     Dosage: UNK
  3. EFFEXOR XR [Suspect]
     Active Substance: VENLAFAXINE HYDROCHLORIDE
  4. VENLAFAXINE HCL [Suspect]
     Active Substance: VENLAFAXINE HYDROCHLORIDE
     Dosage: UNK

REACTIONS (2)
  - Treatment failure [Unknown]
  - Drug hypersensitivity [Unknown]
